FAERS Safety Report 4719517-5 (Version None)
Quarter: 2005Q3

REPORT INFORMATION
  Report Type: 
  Country: None (occurrence: None)
  Receive Date: 20050719
  Receipt Date: 20050719
  Transmission Date: 20060218
  Serious: Yes (Hospitalization)
  Sender: FDA-Public Use
  Company Number: None

PATIENT
  Age: 60 Year
  Sex: Male

DRUGS (8)
  1. IBUPROFEN [Suspect]
     Dosage: 200MG PO  TID PRN
     Route: 048
  2. ALBUTEROL [Concomitant]
  3. ATROVENT [Concomitant]
  4. RAMAPRIL [Concomitant]
  5. DOCUSATE [Concomitant]
  6. HYDROCHLOROTHIAZIDE [Concomitant]
  7. PROMETHAZINE [Concomitant]
  8. AEROBID [Concomitant]

REACTIONS (2)
  - GASTRIC ULCER [None]
  - RENAL FAILURE ACUTE [None]
